FAERS Safety Report 8472876-2 (Version None)
Quarter: 2012Q2

REPORT INFORMATION
  Report Type: 
  Country: None (occurrence: None)
  Receive Date: 20120627
  Receipt Date: 20120217
  Transmission Date: 20120825
  Serious: No
  Sender: FDA-Public Use
  Company Number: US-MYLANLABS-2012S1003682

PATIENT
  Sex: Male

DRUGS (1)
  1. OMEPRAZOLE [Suspect]
     Indication: BARRETT'S OESOPHAGUS
     Route: 048
     Dates: start: 20110101, end: 20120201

REACTIONS (5)
  - VISUAL IMPAIRMENT [None]
  - OROPHARYNGEAL PAIN [None]
  - CONJUNCTIVAL HYPERAEMIA [None]
  - SKIN EXFOLIATION [None]
  - LACRIMATION INCREASED [None]
